FAERS Safety Report 15458402 (Version 8)
Quarter: 2019Q2

REPORT INFORMATION
  Report Type: Report from Study
  Country: RO (occurrence: RO)
  Receive Date: 20181003
  Receipt Date: 20190606
  Transmission Date: 20190711
  Serious: Yes (Death, Life-Threatening, Hospitalization, Disabling)
  Sender: FDA-Public Use
  Company Number: RO-AMGEN-ROUCT2018136631

PATIENT
  Age: 68 Year
  Sex: Female
  Weight: 105 kg

DRUGS (16)
  1. METOPROLOL. [Concomitant]
     Active Substance: METOPROLOL
     Dosage: 50 MILLIGRAM
     Dates: start: 20180809, end: 20180930
  2. LORATADINA [Concomitant]
     Active Substance: LORATADINE
     Dosage: 20 MILLIGRAM
     Route: 048
     Dates: start: 20180212
  3. DEXAMETHASONE. [Suspect]
     Active Substance: DEXAMETHASONE
     Indication: PLASMA CELL MYELOMA
     Dosage: 20-40 MILLIGRAM
     Route: 048
     Dates: start: 20180212
  4. CORDARONE [Concomitant]
     Active Substance: AMIODARONE HYDROCHLORIDE
     Dosage: 600 MILLIGRAM
     Dates: start: 20180805, end: 20180808
  5. BINOCRIT [Concomitant]
     Active Substance: ERYTHROPOIETIN
     Dosage: 40000 UNK
     Dates: start: 20180326, end: 20180930
  6. PARACETAMOL [Concomitant]
     Active Substance: ACETAMINOPHEN
     Dosage: 750 MILLIGRAM
     Route: 048
     Dates: start: 20180212
  7. CARFILZOMIB [Suspect]
     Active Substance: CARFILZOMIB
     Indication: PLASMA CELL MYELOMA
     Dosage: 99 MILLIGRAM, PER CHEMO REGIM
     Route: 042
     Dates: start: 20120212, end: 20180911
  8. SUMETROLIM [Concomitant]
     Active Substance: SULFAMETHOXAZOLE\TRIMETHOPRIM
     Dosage: 400 MILLIGRAM
     Dates: start: 20180205, end: 20180930
  9. MONTELUKAST [Concomitant]
     Active Substance: MONTELUKAST SODIUM
     Dosage: 10-750 MILLIGRAM
     Route: 048
     Dates: start: 20180212
  10. DARATUMUMAB [Suspect]
     Active Substance: DARATUMUMAB
     Indication: PLASMA CELL MYELOMA
     Dosage: UNK UNK, PER CHEMO REGIM
     Route: 042
     Dates: start: 20180212, end: 20180219
  11. LORATADINE. [Concomitant]
     Active Substance: LORATADINE
     Dosage: 20 MILLIGRAM
     Route: 048
     Dates: start: 20180212
  12. ACYCLOVIR. [Concomitant]
     Active Substance: ACYCLOVIR
     Dosage: 400 MILLIGRAM
     Dates: start: 20180205, end: 20180930
  13. LEVOFLOXACINE [Concomitant]
     Active Substance: LEVOFLOXACIN
     Dosage: 750 MILLIGRAM
     Dates: start: 20180805, end: 20180827
  14. OMEPRAZOL [Concomitant]
     Active Substance: OMEPRAZOLE
     Dosage: 20 MILLIGRAM
     Dates: start: 20180212, end: 20180930
  15. ALLOPURINOL. [Concomitant]
     Active Substance: ALLOPURINOL
     Dosage: 100 MILLIGRAM
     Dates: start: 20180205, end: 20180930
  16. SINGULAIR [Concomitant]
     Active Substance: MONTELUKAST SODIUM
     Dosage: 10 MILLIGRAM
     Route: 048
     Dates: start: 20180212

REACTIONS (3)
  - Sepsis [Fatal]
  - Acute kidney injury [Recovered/Resolved]
  - Enterocolitis infectious [Recovered/Resolved]

NARRATIVE: CASE EVENT DATE: 20180922
